FAERS Safety Report 7877003-8 (Version None)
Quarter: 2011Q4

REPORT INFORMATION
  Report Type: 
  Country: None (occurrence: None)
  Receive Date: 20111031
  Receipt Date: 20110907
  Transmission Date: 20120403
  Serious: No
  Sender: FDA-Public Use
  Company Number: US-ABBOTT-11P-163-0852181-00

PATIENT
  Sex: Female
  Weight: 49.032 kg

DRUGS (4)
  1. CREON [Suspect]
     Indication: PANCREATITIS CHRONIC
     Dosage: 3 W MEALS AND 1 WITH SNACKS: 11 DAILY
     Route: 048
     Dates: start: 20110601
  2. VITAMIN D [Concomitant]
     Indication: PRODUCT USED FOR UNKNOWN INDICATION
  3. PRILOSEC [Concomitant]
     Indication: PRODUCT USED FOR UNKNOWN INDICATION
  4. EVISTA [Concomitant]
     Indication: PRODUCT USED FOR UNKNOWN INDICATION

REACTIONS (3)
  - RHINORRHOEA [None]
  - DRUG INEFFECTIVE [None]
  - DYSGEUSIA [None]
